FAERS Safety Report 4906744-7 (Version None)
Quarter: 2006Q1

REPORT INFORMATION
  Report Type: 
  Country: None (occurrence: None)
  Receive Date: 20060206
  Receipt Date: 20060126
  Transmission Date: 20060701
  Serious: Yes (Other)
  Sender: FDA-Public Use
  Company Number: 220195

PATIENT
  Age: 56 Year
  Sex: Male

DRUGS (1)
  1. EFALIZUMAB (EFALIZUMAB) PWDR + SOLVENT, INJECTION SOLN, 125MG [Suspect]
     Indication: PSORIASIS
     Dosage: 0.8 ML, 1/WEEK, SUBCUTANEOUS
     Route: 058
     Dates: start: 20050411, end: 20050921

REACTIONS (4)
  - CONDITION AGGRAVATED [None]
  - ERECTILE DYSFUNCTION [None]
  - NEOPLASM PROSTATE [None]
  - PSORIASIS [None]
